FAERS Safety Report 8219902-3 (Version None)
Quarter: 2012Q1

REPORT INFORMATION
  Report Type: 
  Country: None (occurrence: None)
  Receive Date: 20120319
  Receipt Date: 20120305
  Transmission Date: 20120608
  Serious: Yes (Hospitalization)
  Sender: FDA-Public Use
  Company Number: TW-MYLANLABS-2012S1004967

PATIENT
  Age: 56 Year
  Sex: Female

DRUGS (3)
  1. ESTAZOLAM [Concomitant]
     Indication: DEPRESSIVE SYMPTOM
     Route: 065
  2. QUETIAPINE [Interacting]
     Indication: DEPRESSIVE SYMPTOM
     Dosage: 400MG
     Route: 065
  3. VALPROIC ACID [Suspect]
     Indication: DEPRESSIVE SYMPTOM
     Dosage: 500MG
     Route: 065

REACTIONS (3)
  - NEUTROPENIA [None]
  - THROMBOCYTOPENIA [None]
  - DRUG INTERACTION [None]
